FAERS Safety Report 9440205 (Version 1)
Quarter: 2013Q3

REPORT INFORMATION
  Report Type: Spontaneous
  Country: JP (occurrence: JP)
  Receive Date: 20130805
  Receipt Date: 20130805
  Transmission Date: 20140515
  Serious: Yes (Hospitalization)
  Sender: FDA-Public Use
  Company Number: PHHY2013JP083000

PATIENT
  Sex: Male

DRUGS (3)
  1. DIOVAN [Suspect]
     Dosage: UNK UKN, UNK
     Route: 048
     Dates: end: 20130510
  2. NORVASC [Concomitant]
     Dosage: UNK UKN, UNK
     Route: 048
  3. LASIX [Concomitant]
     Dosage: UNK UKN, UNK

REACTIONS (9)
  - Hepatic steatosis [Unknown]
  - Hepatic function abnormal [Unknown]
  - Dementia [Unknown]
  - Tachycardia [Unknown]
  - Gastrointestinal disorder [Unknown]
  - Anaemia [Unknown]
  - Oedema peripheral [Unknown]
  - Headache [Unknown]
  - Dizziness [Unknown]
